FAERS Safety Report 4421844-6 (Version None)
Quarter: 2004Q3

REPORT INFORMATION
  Report Type: 
  Country: None (occurrence: None)
  Receive Date: 20040806
  Receipt Date: 20040724
  Transmission Date: 20050211
  Serious: Yes (Hospitalization, Other)
  Sender: FDA-Public Use
  Company Number: 2004050257

PATIENT
  Age: 77 Year
  Sex: Male
  Weight: 81.6475 kg

DRUGS (6)
  1. ZOLOFT [Suspect]
     Indication: DEPRESSION
     Dosage: 100 MG (50 MG, 2 IN 1D), ORAL
     Route: 048
     Dates: end: 20040701
  2. WARFARIN (WARFARIN) [Concomitant]
  3. DILTIAZEM HYDROCHLORIDE [Suspect]
  4. ALL OTEHR TEHRAPEUTIC PRODUCTS [Concomitant]
  5. HEPARIN [Concomitant]
  6. ACETYLSALICYLIC ACID 9ACETYLSALICYLIC ACID) [Concomitant]

REACTIONS (7)
  - ABNORMAL BEHAVIOUR [None]
  - DEPRESSION [None]
  - LIP AND/OR ORAL CAVITY CANCER [None]
  - METASTASES TO LYMPH NODES [None]
  - THROAT CANCER [None]
  - TOOTH LOSS [None]
  - WEIGHT DECREASED [None]
